FAERS Safety Report 17476581 (Version 1)
Quarter: 2020Q1

REPORT INFORMATION
  Report Type: Spontaneous
  Country: US (occurrence: US)
  Receive Date: 20200228
  Receipt Date: 20200228
  Transmission Date: 20200409
  Serious: No
  Sender: FDA-Public Use
  Company Number: US-JNJFOC-20200230242

PATIENT
  Sex: Male
  Weight: 82.63 kg

DRUGS (1)
  1. MENS ROGAINE EXTRA STRENGTH [Suspect]
     Active Substance: MINOXIDIL
     Indication: ALOPECIA
     Dosage: HALF A CAP
     Route: 061

REACTIONS (3)
  - Inappropriate schedule of product administration [Unknown]
  - Application site rash [Recovered/Resolved]
  - Application site reaction [Recovered/Resolved]
